FAERS Safety Report 6952768-8 (Version None)
Quarter: 2010Q3

REPORT INFORMATION
  Report Type: 
  Country: None (occurrence: None)
  Receive Date: 20100829
  Receipt Date: 20100608
  Transmission Date: 20110219
  Serious: No
  Sender: FDA-Public Use
  Company Number: US-ABBOTT-10P-163-0645478-00

PATIENT
  Age: 60 Year
  Sex: Male

DRUGS (2)
  1. NIASPAN [Suspect]
     Indication: LIPIDS ABNORMAL
     Dosage: 500 MILLIGRAM DAILY
     Route: 048
  2. UNKNOWN STATIN [Concomitant]
     Indication: LIPIDS ABNORMAL

REACTIONS (1)
  - MEDICATION RESIDUE [None]
